FAERS Safety Report 8691955 (Version 4)
Quarter: 2012Q4

REPORT INFORMATION
  Report Type: 
  Country: US (occurrence: US)
  Receive Date: 20120730
  Receipt Date: 20121018
  Transmission Date: 20130627
  Serious: No
  Sender: FDA-Public Use
  Company Number: US-PFIZER INC-2012179337

PATIENT
  Sex: Female

DRUGS (2)
  1. XALATAN [Suspect]
     Dosage: Unk
     Route: 047
  2. LATANOPROST [Suspect]
     Dosage: Unk

REACTIONS (5)
  - Hair disorder [Unknown]
  - Hair growth abnormal [Not Recovered/Not Resolved]
  - Eye colour change [Unknown]
  - Feeling abnormal [Unknown]
  - Drug ineffective [Unknown]
